FAERS Safety Report 4754353-5 (Version None)
Quarter: 2005Q3

REPORT INFORMATION
  Report Type: 
  Country: None (occurrence: None)
  Receive Date: 20050826
  Receipt Date: 20050328
  Transmission Date: 20060218
  Serious: Yes (Death)
  Sender: FDA-Public Use
  Company Number: 2012385

PATIENT
  Age: 24 Year
  Sex: Male

DRUGS (14)
  1. OXYCODONE HCL [Suspect]
  2. HYDROCODONE BITARTRATE [Suspect]
  3. FENTANYL [Suspect]
  4. ELAVIL [Suspect]
  5. ALPRAZOLAM [Suspect]
  6. ACETAMINOPHEN [Suspect]
  7. CAFFEINE (CAFFEINE) [Suspect]
  8. ETHANOL (ETHANOL) [Suspect]
  9. NICOTINE [Suspect]
  10. CANNABIS (CANNABIS) [Suspect]
  11. VOLTAREN [Concomitant]
  12. TRILAFON [Concomitant]
  13. FLEXERIL [Concomitant]
  14. VICODIN ES [Concomitant]

REACTIONS (1)
  - MULTIPLE DRUG OVERDOSE ACCIDENTAL [None]
